FAERS Safety Report 5749539-7 (Version None)
Quarter: 2008Q2

REPORT INFORMATION
  Report Type: 
  Country: None (occurrence: None)
  Receive Date: 20080520
  Receipt Date: 20080520
  Transmission Date: 20081010
  Serious: Yes (Hospitalization)
  Sender: FDA-Public Use
  Company Number: None

PATIENT

DRUGS (1)
  1. METOLAZONE [Suspect]
     Indication: OEDEMA
     Dosage: 2.5 MG OTHER PO
     Route: 048
     Dates: start: 20080411, end: 20080417

REACTIONS (3)
  - HYPOCHLORAEMIA [None]
  - HYPOKALAEMIA [None]
  - HYPONATRAEMIA [None]
